FAERS Safety Report 8380747-5 (Version None)
Quarter: 2012Q2

REPORT INFORMATION
  Report Type: 
  Country: None (occurrence: None)
  Receive Date: 20120523
  Receipt Date: 20120521
  Transmission Date: 20120825
  Serious: Yes (Other)
  Sender: FDA-Public Use
  Company Number: US-PFIZER INC-2012032814

PATIENT
  Sex: Female

DRUGS (3)
  1. INSULIN [Suspect]
     Dosage: UNK
  2. LYRICA [Suspect]
     Dosage: UNK
  3. METFORMIN HCL [Suspect]
     Dosage: UNK
     Route: 048

REACTIONS (5)
  - FIBROMYALGIA [None]
  - DIABETIC NEUROPATHY [None]
  - DIABETES MELLITUS [None]
  - CYSTITIS [None]
  - PAIN [None]
